FAERS Safety Report 7271237-1 (Version None)
Quarter: 2011Q1

REPORT INFORMATION
  Report Type: 
  Country: None (occurrence: None)
  Receive Date: 20110202
  Receipt Date: 20110120
  Transmission Date: 20110831
  Serious: Yes (Hospitalization, Other)
  Sender: FDA-Public Use
  Company Number: US-ELI_LILLY_AND_COMPANY-US201008007464

PATIENT
  Sex: Female

DRUGS (12)
  1. FORTEO [Suspect]
     Indication: OSTEOPOROSIS
     Dosage: 20 UG, DAILY (1/D)
     Dates: start: 20100819
  2. IRON [Concomitant]
  3. PRESERVISION LUTEIN EYE VITA.+MIN.SUP.SOFTG. [Concomitant]
  4. NORVASC [Concomitant]
  5. ADVIL PM                           /05810501/ [Concomitant]
  6. ELMIRON [Concomitant]
  7. GLIPIZIDE [Concomitant]
  8. TAMSULOSIN HCL [Concomitant]
  9. ASPIRINE BAYER [Concomitant]
  10. NEXIUM [Concomitant]
  11. ZESTRIL [Concomitant]
  12. LORTAB [Concomitant]

REACTIONS (17)
  - IMPAIRED HEALING [None]
  - WEIGHT DECREASED [None]
  - DYSPHAGIA [None]
  - FALL [None]
  - BLOOD POTASSIUM DECREASED [None]
  - BLOOD GLUCOSE INCREASED [None]
  - EATING DISORDER [None]
  - FUNGAL INFECTION [None]
  - BLOOD SODIUM DECREASED [None]
  - ASTHENIA [None]
  - PAIN IN EXTREMITY [None]
  - OESOPHAGEAL DISORDER [None]
  - GAIT DISTURBANCE [None]
  - UPPER LIMB FRACTURE [None]
  - LABORATORY TEST ABNORMAL [None]
  - CALCINOSIS [None]
  - DECREASED APPETITE [None]
